FAERS Safety Report 10238827 (Version 1)
Quarter: 2014Q2

REPORT INFORMATION
  Report Type: Spontaneous
  Country: US (occurrence: None)
  Receive Date: 20140613
  Receipt Date: 20140613
  Transmission Date: 20141212
  Serious: Yes (Life-Threatening, Hospitalization, Other)
  Sender: FDA-Public Use
  Company Number: None

PATIENT
  Age: 58 Year
  Sex: Female
  Weight: 92.99 kg

DRUGS (12)
  1. TRIAMCINOLONE [Suspect]
     Indication: RASH
     Dosage: 1-2X DAILY TWICE ON SKIN
     Route: 061
     Dates: start: 20140317
  2. TIMILOL [Concomitant]
  3. INSPRA [Concomitant]
  4. LEVOTHYROXINE [Concomitant]
  5. MORPHENE [Concomitant]
  6. OCUVITE [Concomitant]
  7. MEGARED [Concomitant]
  8. VITAMIN B [Concomitant]
  9. MAGNESIUM [Concomitant]
  10. SALT [Concomitant]
  11. POTASSIUM [Concomitant]
  12. O2 [Concomitant]

REACTIONS (6)
  - Rash [None]
  - Urticaria [None]
  - Eye swelling [None]
  - Acute respiratory failure [None]
  - Cheilitis [None]
  - Erythema [None]
